FAERS Safety Report 10388706 (Version 1)
Quarter: 2014Q1

REPORT INFORMATION
  Report Type: Spontaneous
  Country: US (occurrence: None)
  Receive Date: 20140306
  Receipt Date: 20140306
  Transmission Date: 20141002
  Serious: Yes (Hospitalization, Other)
  Sender: FDA-Public Use
  Company Number: 163-21880-13110524

PATIENT
  Age: 77 Year
  Sex: Male

DRUGS (9)
  1. REVLIMID (LENALIDOMIDE) (CAPSULES) [Suspect]
     Indication: PLASMACYTOMA
     Route: 048
     Dates: start: 20130605
  2. METFORMIN HCL (METFORMIN HYDROCHLORIDE) [Concomitant]
  3. CHILDREN^S TYLENOL (PARACETAMOL) [Concomitant]
  4. PACKED RED BLOOD CELLS [Concomitant]
  5. LASIX (FUROSEMIDE) [Concomitant]
  6. ASPIRIN (ACETYLSALICYLIC ACID) [Concomitant]
  7. STATIN (HMG COA REDUCTASE INHIBITORS) [Concomitant]
  8. PLAVIX (CLOPIDOGREL SULFATE) [Concomitant]
  9. COREG (CARVEDILOL) [Concomitant]

REACTIONS (3)
  - Acute myocardial infarction [None]
  - Hypotension [None]
  - Cardiac failure congestive [None]
